FAERS Safety Report 10383115 (Version 1)
Quarter: 2014Q3

REPORT INFORMATION
  Report Type: Spontaneous
  Country: US (occurrence: US)
  Receive Date: 20140813
  Receipt Date: 20140813
  Transmission Date: 20150326
  Serious: No
  Sender: FDA-Public Use
  Company Number: -SAAVPROD-FABR-1003595

PATIENT
  Sex: Male

DRUGS (2)
  1. DIPHENHYDRAMINE [Concomitant]
     Active Substance: DIPHENHYDRAMINE
     Indication: PREMEDICATION
     Dosage: UNK
     Route: 065
  2. AGALSIDASE BETA [Suspect]
     Active Substance: AGALSIDASE BETA
     Indication: FABRY^S DISEASE
     Dosage: UNK
     Route: 042

REACTIONS (4)
  - Throat tightness [Unknown]
  - Flushing [Unknown]
  - Chest discomfort [Unknown]
  - Lip swelling [Unknown]

NARRATIVE: CASE EVENT DATE: 20130905
